FAERS Safety Report 4989465-4 (Version None)
Quarter: 2006Q2

REPORT INFORMATION
  Report Type: 
  Country: None (occurrence: None)
  Receive Date: 20060502
  Receipt Date: 20050829
  Transmission Date: 20061013
  Serious: Yes (Hospitalization, Disabling, Other)
  Sender: FDA-Public Use
  Company Number: US-MERCK-0508USA04629

PATIENT
  Age: 49 Year
  Sex: Male
  Weight: 89 kg

DRUGS (3)
  1. VIOXX [Suspect]
     Indication: ARTHRITIS
     Route: 048
     Dates: start: 20010101, end: 20020101
  2. VIOXX [Suspect]
     Route: 048
  3. TYLENOL (CAPLET) [Concomitant]
     Route: 065

REACTIONS (9)
  - ADVERSE DRUG REACTION [None]
  - ANGINA PECTORIS [None]
  - ANGINA UNSTABLE [None]
  - CHEST PAIN [None]
  - CORONARY ARTERY DISEASE [None]
  - DYSLIPIDAEMIA [None]
  - MYOCARDIAL INFARCTION [None]
  - PLATELET COUNT DECREASED [None]
  - PULMONARY HILUM MASS [None]
